FAERS Safety Report 15816417 (Version 1)
Quarter: 2019Q1

REPORT INFORMATION
  Report Type: Spontaneous
  Country: US (occurrence: US)
  Receive Date: 20190113
  Receipt Date: 20190113
  Transmission Date: 20190417
  Serious: No
  Sender: FDA-Public Use
  Company Number: US-COOPERSURGICAL, INC.-US-2018CPS032947

PATIENT

DRUGS (3)
  1. PARAGARD T 380A [Suspect]
     Active Substance: COPPER
     Indication: CONTRACEPTION
     Dosage: UNK
     Route: 015
     Dates: start: 20180502, end: 20180803
  2. FLUOXETINE [Concomitant]
     Active Substance: FLUOXETINE HYDROCHLORIDE
     Indication: ANXIETY
     Dosage: 20 MG, UNK
     Dates: start: 201806
  3. FLUOXETINE [Concomitant]
     Active Substance: FLUOXETINE HYDROCHLORIDE
     Indication: DEPRESSION

REACTIONS (10)
  - Anxiety [Recovered/Resolved]
  - Dysmenorrhoea [Recovered/Resolved]
  - Thyroid hormones increased [Recovered/Resolved]
  - Menorrhagia [Unknown]
  - Migraine [Recovered/Resolved]
  - Device material issue [Recovered/Resolved]
  - Blood copper increased [Unknown]
  - Depression [Recovered/Resolved]
  - Device colour issue [Recovered/Resolved]
  - Pain [Recovered/Resolved]

NARRATIVE: CASE EVENT DATE: 20180502
